FAERS Safety Report 4455541-8 (Version None)
Quarter: 2004Q3

REPORT INFORMATION
  Report Type: 
  Country: None (occurrence: None)
  Receive Date: 20040917
  Receipt Date: 20040824
  Transmission Date: 20050211
  Serious: Yes (Death, Life-Threatening)
  Sender: FDA-Public Use
  Company Number: US_020988307

PATIENT
  Age: 78 Year
  Sex: Male
  Weight: 57 kg

DRUGS (6)
  1. VANCOMYCIN HCL [Suspect]
     Indication: PNEUMONIA STAPHYLOCOCCAL
     Dosage: 500 MG/2 DAY
     Dates: start: 20020919, end: 20020920
  2. GENTACIN (GENTAMICIN SULFATE) [Concomitant]
  3. DIFLUCAN [Concomitant]
  4. MODACIN (CEFTAZIDIME) [Concomitant]
  5. ANHIBA (PARACETAMOL) [Concomitant]
  6. INDACIN (INDOMETACIN) [Concomitant]

REACTIONS (12)
  - ALANINE AMINOTRANSFERASE INCREASED [None]
  - ASPARTATE AMINOTRANSFERASE INCREASED [None]
  - BLOOD ALKALINE PHOSPHATASE INCREASED [None]
  - BLOOD PRESSURE DECREASED [None]
  - CANDIDIASIS [None]
  - CONDITION AGGRAVATED [None]
  - DRUG EFFECT DECREASED [None]
  - MULTI-ORGAN FAILURE [None]
  - PLEURAL EFFUSION [None]
  - PNEUMONIA STAPHYLOCOCCAL [None]
  - RENAL DISORDER [None]
  - URINE OUTPUT DECREASED [None]
